FAERS Safety Report 9915629 (Version 1)
Quarter: 2014Q1

REPORT INFORMATION
  Report Type: Spontaneous
  Country: US (occurrence: None)
  Receive Date: 20140219
  Receipt Date: 20140219
  Transmission Date: 20141002
  Serious: Yes (Disabling)
  Sender: FDA-Public Use
  Company Number: None

PATIENT
  Age: 53 Year
  Sex: Female
  Weight: 70.76 kg

DRUGS (18)
  1. ACTHAR HP [Suspect]
     Indication: MULTIPLE SCLEROSIS
     Dosage: 400 USP UNITS/5ML (80USP UNITS/ML ?1 SHOT DAILY FOR 5 DAYS. 1ML?ONCE DAILY FOR 5 DAYS ?SUBCUTANEOUS INJECTION
     Route: 058
     Dates: start: 20140128, end: 20140131
  2. METOPROLOL SUCC ER [Concomitant]
  3. LOVAZA [Concomitant]
  4. CITRACAL [Concomitant]
  5. VIT D [Concomitant]
  6. CITOLPRAM [Concomitant]
  7. BACLFEN [Concomitant]
  8. VITAFUSION MULTI. VIT [Concomitant]
  9. VIT. C. [Concomitant]
  10. TECFIDER [Concomitant]
  11. FUROSEMIDE [Concomitant]
  12. FUROSEMIDE [Concomitant]
  13. VIT D3 [Concomitant]
  14. BENEDRYL [Concomitant]
  15. VIPAFUSION MULTI-VITAMINS CHEWABLE 2 GUMMIES [Concomitant]
  16. RECLAST [Concomitant]
  17. NIACIN [Concomitant]
  18. VIT B COMPLETE WITH B12 [Concomitant]

REACTIONS (8)
  - Blood glucose increased [None]
  - Visual impairment [None]
  - Vaginal haemorrhage [None]
  - Vision blurred [None]
  - Muscle spasms [None]
  - Weight increased [None]
  - Back pain [None]
  - Confusional state [None]
